FAERS Safety Report 15398543 (Version 1)
Quarter: 2018Q3

REPORT INFORMATION
  Report Type: Report from Study
  Country: JP (occurrence: JP)
  Receive Date: 20180918
  Receipt Date: 20180918
  Transmission Date: 20181010
  Serious: Yes (Other)
  Sender: FDA-Public Use
  Company Number: PHJP2017JP009076

PATIENT
  Age: 39 Year
  Sex: Female

DRUGS (5)
  1. CABERGOLINE. [Concomitant]
     Active Substance: CABERGOLINE
     Indication: ACROMEGALY
     Dosage: 2 MG, UNK
     Route: 065
     Dates: start: 20161209
  2. CABASER [Concomitant]
     Active Substance: CABERGOLINE
     Indication: ACROMEGALY
     Dosage: 0.25 MG, UNK
     Route: 048
  3. SIGNIFOR LAR [Suspect]
     Active Substance: PASIREOTIDE
     Dosage: 60 MG, 4W
     Route: 030
     Dates: start: 20170401
  4. SIGNIFOR LAR [Suspect]
     Active Substance: PASIREOTIDE
     Indication: ACROMEGALY
     Dosage: 40 MG, 4W
     Route: 030
     Dates: start: 20161209, end: 20170304
  5. CELECOX [Concomitant]
     Active Substance: CELECOXIB
     Indication: HEADACHE
     Dosage: 200 MG, UNK
     Route: 048

REACTIONS (4)
  - Drug effect incomplete [Not Recovered/Not Resolved]
  - Diabetes mellitus [Recovering/Resolving]
  - Hyperglycaemia [Unknown]
  - Glycosylated haemoglobin increased [Not Recovered/Not Resolved]

NARRATIVE: CASE EVENT DATE: 201701
